FAERS Safety Report 21148670 (Version 1)
Quarter: 2022Q3

REPORT INFORMATION
  Report Type: Spontaneous
  Country: GB (occurrence: GB)
  Receive Date: 20220729
  Receipt Date: 20220729
  Transmission Date: 20221026
  Serious: Yes (Hospitalization)
  Sender: FDA-Public Use
  Company Number: GB-JNJFOC-20220719235

PATIENT
  Sex: Male

DRUGS (2)
  1. PREDNISOLONE [Suspect]
     Active Substance: PREDNISOLONE
     Indication: Product used for unknown indication
     Dosage: 10 MILLIGRAM DAILY; STRENGTH: 5MG, UNIT DOSE: 5MG, FREQUENCY: 1 TIME EVERY .5 DAYS
     Route: 065
  2. ZYTIGA [Suspect]
     Active Substance: ABIRATERONE ACETATE
     Indication: Product used for unknown indication
     Dosage: 1000 MILLIGRAM DAILY; STRENGTH: 1000MG, UNIT DOSE: 1000MG, FREQUENCY: 1 TIME EVERY 1 DAY
     Route: 048

REACTIONS (2)
  - Infection [Unknown]
  - Fall [Unknown]
